FAERS Safety Report 6394264-5 (Version None)
Quarter: 2009Q4

REPORT INFORMATION
  Report Type: 
  Country: None (occurrence: None)
  Receive Date: 20091008
  Receipt Date: 20090928
  Transmission Date: 20100525
  Serious: Yes (Death)
  Sender: FDA-Public Use
  Company Number: US-ELI_LILLY_AND_COMPANY-US200909001537

PATIENT
  Sex: Female

DRUGS (4)
  1. SYMBYAX [Suspect]
     Indication: MAJOR DEPRESSION
     Dosage: 1 D/F, DAILY (1/D)
     Dates: start: 20090618
  2. XANAX [Concomitant]
     Indication: ANXIETY
     Dosage: 1 MG, UNK
     Dates: start: 20080401
  3. XANAX [Concomitant]
     Dosage: 2 MG, EACH EVENING
  4. PEXEVA [Concomitant]
     Indication: DEPRESSION
     Dosage: 20 MG, UNK
     Dates: start: 20090507

REACTIONS (2)
  - ACCIDENTAL POISONING [None]
  - POISONING [None]
